FAERS Safety Report 25974993 (Version 2)
Quarter: 2025Q4

REPORT INFORMATION
  Report Type: Spontaneous
  Country: EU (occurrence: EU)
  Receive Date: 20251029
  Receipt Date: 20251110
  Transmission Date: 20260119
  Serious: Yes (Death, Hospitalization)
  Sender: TEVA
  Company Number: EU-TEVA-VS-3386227

PATIENT
  Age: 57 Year
  Sex: Male

DRUGS (4)
  1. METHOTREXATE [Suspect]
     Active Substance: METHOTREXATE
     Indication: Maxillofacial sinus neoplasm
     Dosage: DAY 1, 4 CYCLES
     Route: 065
     Dates: start: 201712
  2. FLUOROURACIL [Suspect]
     Active Substance: FLUOROURACIL
     Indication: Maxillofacial sinus neoplasm
     Dosage: DAY 1-4, 4 CYCLES
     Route: 065
     Dates: start: 201708, end: 201711
  3. CISPLATIN [Suspect]
     Active Substance: CISPLATIN
     Indication: Maxillofacial sinus neoplasm
     Dosage: DAY 1, 4 CYCLES
     Route: 065
     Dates: start: 201708, end: 201711
  4. DOCETAXEL [Suspect]
     Active Substance: DOCETAXEL
     Indication: Maxillofacial sinus neoplasm
     Dosage: DAY 1, 5 CYCLES
     Route: 042
     Dates: start: 201703, end: 201706

REACTIONS (8)
  - Drug ineffective [Fatal]
  - Hyponatraemia [Unknown]
  - Hyperuricaemia [Unknown]
  - Anaemia [Unknown]
  - White blood cell count increased [Unknown]
  - Neutropenia [Unknown]
  - Myelosuppression [Unknown]
  - Hypochloraemia [Unknown]
